FAERS Safety Report 9375361 (Version 2)
Quarter: 2013Q3

REPORT INFORMATION
  Report Type: Spontaneous
  Country: FR (occurrence: FR)
  Receive Date: 20130628
  Receipt Date: 20130710
  Transmission Date: 20140515
  Serious: Yes (Other)
  Sender: FDA-Public Use
  Company Number: FR-BRISTOL-MYERS SQUIBB COMPANY-19052760

PATIENT
  Age: 72 Year
  Sex: Female

DRUGS (7)
  1. GLUCOPHAGE TABS 1000 MG [Suspect]
     Indication: DIABETES MELLITUS
     Dosage: 1 DOSAGE FORM-3 GRAMS DAILY
     Route: 048
     Dates: end: 20130501
  2. LANTUS [Suspect]
     Indication: DIABETES MELLITUS
     Dosage: SOLUTION FOR INJECTION?IN EVENING
     Route: 058
  3. INSULIN RAPID [Suspect]
     Indication: DIABETES MELLITUS
     Dosage: SOLUTION FOR INJECTION?TO THE MEAL ,DEPENDENT GLYCAEMIA.
     Route: 058
  4. FORTZAAR [Concomitant]
     Indication: HYPERTENSION
  5. MONO-TILDIEM [Concomitant]
     Indication: HYPERTENSION
  6. ALDACTONE [Concomitant]
     Indication: HYPERTENSION
  7. TANGANIL [Concomitant]

REACTIONS (2)
  - Urticaria [Not Recovered/Not Resolved]
  - Pruritus [Unknown]
